FAERS Safety Report 9377012 (Version 1)
Quarter: 2013Q3

REPORT INFORMATION
  Report Type: Report from Study
  Country: CA (occurrence: CA)
  Receive Date: 20130701
  Receipt Date: 20130701
  Transmission Date: 20140515
  Serious: Yes (Hospitalization)
  Sender: FDA-Public Use
  Company Number: CA-JNJFOC-20130616963

PATIENT
  Age: 68 Year
  Sex: Female
  Weight: 60 kg

DRUGS (7)
  1. REMICADE [Suspect]
     Indication: CROHN^S DISEASE
     Dosage: THERAPY START DATE: ^12-APR-210^
     Route: 042
  2. DILTIAZEM [Concomitant]
     Route: 065
  3. FENOFIBRATE [Concomitant]
     Route: 065
  4. LOMOTIL [Concomitant]
     Route: 065
  5. ZOPICLONE [Concomitant]
     Route: 065
  6. VITAMIN B12 [Concomitant]
     Route: 065
  7. EFFEXOR [Concomitant]
     Route: 065

REACTIONS (1)
  - Nephrolithiasis [Unknown]
